FAERS Safety Report 6945790-9 (Version None)
Quarter: 2010Q3

REPORT INFORMATION
  Report Type: 
  Country: None (occurrence: None)
  Receive Date: 20100827
  Receipt Date: 20100819
  Transmission Date: 20110219
  Serious: Yes (Hospitalization)
  Sender: FDA-Public Use
  Company Number: B0671931A

PATIENT
  Age: 69 Year
  Sex: Male

DRUGS (8)
  1. KREDEX [Suspect]
     Indication: PRODUCT USED FOR UNKNOWN INDICATION
     Dosage: 25MG PER DAY
     Route: 048
     Dates: start: 20100501
  2. PRASUGREL [Suspect]
     Indication: PRODUCT USED FOR UNKNOWN INDICATION
     Dosage: 1U PER DAY
     Route: 048
     Dates: start: 20100501
  3. GLUCOR [Suspect]
     Indication: PRODUCT USED FOR UNKNOWN INDICATION
     Route: 048
     Dates: start: 20100501
  4. PRAVASTATIN [Suspect]
     Indication: PRODUCT USED FOR UNKNOWN INDICATION
     Route: 048
     Dates: start: 20100501
  5. PANTOPRAZOLE [Concomitant]
     Dates: start: 20080101
  6. KARDEGIC [Concomitant]
     Dates: start: 20080101
  7. IXPRIM [Concomitant]
     Dates: start: 20080101
  8. AMLODIPINE [Concomitant]
     Dates: start: 20080101

REACTIONS (4)
  - CHEST DISCOMFORT [None]
  - EOSINOPHILIA [None]
  - RENAL FAILURE ACUTE [None]
  - TROPONIN INCREASED [None]
